FAERS Safety Report 5120451-X (Version None)
Quarter: 2006Q4

REPORT INFORMATION
  Report Type: 
  Country: None (occurrence: None)
  Receive Date: 20061004
  Receipt Date: 20060922
  Transmission Date: 20070319
  Serious: Yes (Hospitalization)
  Sender: FDA-Public Use
  Company Number: 2006GB01689

PATIENT
  Age: 2 Hour
  Sex: Female
  Weight: 3.8 kg

DRUGS (2)
  1. SEROQUEL [Suspect]
     Route: 064
  2. EFFEXOR [Suspect]
     Route: 064

REACTIONS (3)
  - AGITATION NEONATAL [None]
  - CONVULSION NEONATAL [None]
  - DRUG EXPOSURE DURING PREGNANCY [None]
